FAERS Safety Report 9835073 (Version 1)
Quarter: 2014Q1

REPORT INFORMATION
  Report Type: Spontaneous
  Country: US (occurrence: US)
  Receive Date: 20140122
  Receipt Date: 20140122
  Transmission Date: 20141002
  Serious: Yes (Hospitalization)
  Sender: FDA-Public Use
  Company Number: US-BAYER-2014-009445

PATIENT
  Age: 29 Year
  Sex: Female

DRUGS (18)
  1. YAZ [Suspect]
     Dosage: UNK
  2. AMOXICILLIN [Concomitant]
     Dosage: 5000 MG, UNK
     Route: 048
     Dates: start: 20090608
  3. ACETAMINOPHEN W/CODEINE [Concomitant]
     Dosage: 300/30 MG
     Route: 048
     Dates: start: 20090608
  4. VENTOLIN [Concomitant]
     Dosage: UNK
     Dates: start: 20090619
  5. AMPICILLIN [Concomitant]
     Dosage: 500 MG, UNK
     Route: 048
     Dates: start: 20090627
  6. ATROVENT [Concomitant]
     Dosage: UNK
     Dates: start: 20090627
  7. ALBUTEROL [Concomitant]
     Dosage: 2 MG, UNK
     Route: 048
     Dates: start: 20090627
  8. METHYLPREDNISOLONE [Concomitant]
     Dosage: 4 MG, UNK
     Route: 048
     Dates: start: 20090702
  9. AVELOX [Concomitant]
     Dosage: 400 MG, UNK
     Route: 048
     Dates: start: 20090705
  10. FUROSEMIDE [Concomitant]
     Dosage: 20 MG, UNK
     Route: 048
     Dates: start: 20090713
  11. CARVEDILOL [Concomitant]
     Dosage: 6.25 MG, UNK
     Route: 048
     Dates: start: 20090713
  12. ENALAPRIL [Concomitant]
     Dosage: 5 MG, UNK
     Route: 048
     Dates: start: 20090713
  13. DIGOXIN [Concomitant]
     Dosage: 0.125 MG, UNK
     Route: 048
     Dates: start: 20090713
  14. INSPRA [Concomitant]
     Dosage: UNK
     Route: 048
     Dates: start: 20090713
  15. VASOTEC [Concomitant]
     Dosage: UNK
     Route: 048
     Dates: start: 20090831
  16. COREG [Concomitant]
     Dosage: UNK
     Route: 048
     Dates: start: 20090831
  17. LANOXIN [Concomitant]
     Dosage: UNK
     Route: 048
     Dates: start: 20090831
  18. LASIX [Concomitant]
     Dosage: UNK
     Route: 048
     Dates: start: 20090831

REACTIONS (3)
  - Cardiac failure congestive [None]
  - Cholecystitis [None]
  - Pulmonary embolism [None]
